FAERS Safety Report 6878379-0 (Version None)
Quarter: 2010Q3

REPORT INFORMATION
  Report Type: 
  Country: None (occurrence: None)
  Receive Date: 20100728
  Receipt Date: 20100716
  Transmission Date: 20110219
  Serious: Yes (Hospitalization)
  Sender: FDA-Public Use
  Company Number: GXKR2010ES07216

PATIENT
  Age: 59 Year
  Sex: Male
  Weight: 110 kg

DRUGS (9)
  1. MIDAZOLAM (NGX) [Suspect]
     Indication: DISCOMFORT
     Dosage: 1.5 MG, UNK
     Route: 065
  2. MIDAZOLAM (NGX) [Suspect]
     Dosage: 1 MG, UNK
  3. PROPOFOL (NGX) [Suspect]
     Dosage: 1 MG/KG/H
  4. PROPOFOL (NGX) [Suspect]
     Dosage: 50 MG
     Route: 040
  5. NALOXONE (NGX) [Suspect]
     Dosage: 0.4 MG, UNK
     Route: 065
  6. FLUMAZENIL (NGX) [Suspect]
     Dosage: 0.25 MG, UNK
     Route: 065
  7. REMIFENTANIL [Suspect]
     Dosage: 0.1 UG/KG/MIN
  8. REMIFENTANIL [Suspect]
     Dosage: 0.05 UG/KG/MIN
     Route: 065
  9. OXYGEN [Concomitant]
     Route: 048

REACTIONS (12)
  - DECEREBRATION [None]
  - EYE MOVEMENT DISORDER [None]
  - HYPERTENSION [None]
  - HYPOXIA [None]
  - LARYNGOSCOPY [None]
  - MUSCLE RIGIDITY [None]
  - MYALGIA [None]
  - MYDRIASIS [None]
  - PSYCHOMOTOR HYPERACTIVITY [None]
  - RESPIRATORY ARREST [None]
  - TACHYARRHYTHMIA [None]
  - UNRESPONSIVE TO STIMULI [None]
